FAERS Safety Report 7889591-6 (Version None)
Quarter: 2011Q4

REPORT INFORMATION
  Report Type: 
  Country: None (occurrence: None)
  Receive Date: 20111103
  Receipt Date: 20110617
  Transmission Date: 20120403
  Serious: No
  Sender: FDA-Public Use
  Company Number: US-BRISTOL-MYERS SQUIBB COMPANY-15814312

PATIENT
  Age: 31 Year
  Sex: Male
  Weight: 72 kg

DRUGS (1)
  1. KENALOG-40 [Suspect]
     Indication: SEASONAL ALLERGY
     Route: 030
     Dates: start: 20110602

REACTIONS (1)
  - EXPIRED DRUG ADMINISTERED [None]
